FAERS Safety Report 23351165 (Version 2)
Quarter: 2024Q4

REPORT INFORMATION
  Report Type: Spontaneous
  Country: US (occurrence: US)
  Receive Date: 20231229
  Receipt Date: 20241219
  Transmission Date: 20250114
  Serious: No
  Sender: AGIOS PHARMACEUTICALS
  Company Number: US-AGIOS-2312US03589

PATIENT
  Sex: Female

DRUGS (1)
  1. PYRUKYND [Suspect]
     Active Substance: MITAPIVAT
     Indication: Pyruvate kinase deficiency anaemia
     Dosage: 50 MILLIGRAM
     Route: 065
     Dates: start: 20230711

REACTIONS (2)
  - Cough [Recovering/Resolving]
  - Nasopharyngitis [Recovering/Resolving]
